FAERS Safety Report 17705020 (Version 12)
Quarter: 2023Q2

REPORT INFORMATION
  Report Type: Spontaneous
  Country: US (occurrence: US)
  Receive Date: 20200424
  Receipt Date: 20230515
  Transmission Date: 20230722
  Serious: Yes (Other)
  Sender: FDA-Public Use
  Company Number: US-PFIZER INC-2020158214

PATIENT
  Age: 67 Year
  Sex: Female
  Weight: 60.78 kg

DRUGS (27)
  1. XELJANZ [Suspect]
     Active Substance: TOFACITINIB CITRATE
     Indication: Rheumatoid arthritis
     Dosage: 5 MG, 2X/DAY [TAKE 1 TAB TWO TIMES DAILY]
     Route: 048
     Dates: start: 201908
  2. XELJANZ [Suspect]
     Active Substance: TOFACITINIB CITRATE
     Indication: Fibromyalgia
  3. XELJANZ [Suspect]
     Active Substance: TOFACITINIB CITRATE
     Indication: Osteoarthritis
  4. XELJANZ [Suspect]
     Active Substance: TOFACITINIB CITRATE
     Indication: Arthritis
  5. TRAMADOL [Concomitant]
     Active Substance: TRAMADOL
     Indication: Pain
     Dosage: 50 MG, AS NEEDED
  6. TRAMADOL [Concomitant]
     Active Substance: TRAMADOL
     Dosage: 50 MG, AS NEEDED [50 MG [TAKE 1 OR 2 TABLETS EVERY 6 HOURS]]
  7. ADVAIR HFA [Concomitant]
     Active Substance: FLUTICASONE PROPIONATE\SALMETEROL XINAFOATE
     Dosage: UNK, 2X/DAY [INHALE 1 PUFF(S)]
  8. ALBUTEROL SULFATE [Concomitant]
     Active Substance: ALBUTEROL SULFATE
     Indication: Wheezing
     Dosage: UNK, AS NEEDED [2.5 MG13 ML (0.083 %) SOLUTION/ INHALE EVERY 6 HOURS ]
  9. ALENDRONATE [Concomitant]
     Active Substance: ALENDRONATE SODIUM
     Dosage: UNK
     Dates: start: 20230227
  10. AZITHROMYCIN [Concomitant]
     Active Substance: AZITHROMYCIN
     Dosage: UNK
     Dates: start: 20230224
  11. CLONAZEPAM [Concomitant]
     Active Substance: CLONAZEPAM
     Dosage: 1 MG, DAILY [TAKE 1 TABLET(S) EVERY DAY AT BEDTIME FOR 30 DAYS]
     Route: 048
  12. CYCLOBENZAPRINE [Concomitant]
     Active Substance: CYCLOBENZAPRINE
     Dosage: 10 MG, AS NEEDED [TAKE 1 TABLET(S) EVERY DAY]
     Route: 048
  13. VITAMIN D2 [Concomitant]
     Active Substance: ERGOCALCIFEROL
     Dosage: 50000 IU, WEEKLY [TAKE 1 CAPSULE(S) FOR 84 DAYS]
     Route: 048
  14. FOLIC ACID [Concomitant]
     Active Substance: FOLIC ACID
     Indication: Oral pain
     Dosage: 1 MG, DAILY [MAY INCREASE TO 2 TO 3 TABLETS DAILY IF NEEDED]
     Route: 048
  15. GABAPENTIN [Concomitant]
     Active Substance: GABAPENTIN
     Dosage: 900 MG, 1X/DAY [TAKE 1 CAPSULE(S) 3 TIMES A DAY FOR 30 DAYS]
     Route: 048
  16. HYDROCHLOROTHIAZIDE [Concomitant]
     Active Substance: HYDROCHLOROTHIAZIDE
     Dosage: UNK
  17. LINZESS [Concomitant]
     Active Substance: LINACLOTIDE
     Dosage: 145 UG, DAILY
     Route: 048
  18. METHOTREXATE SODIUM [Concomitant]
     Active Substance: METHOTREXATE SODIUM
     Dosage: 2.5 MG, [TAKE 7 TABLETS ONCE A WEEK WITH FOOD]
     Route: 048
  19. PANTOPRAZOLE [Concomitant]
     Active Substance: PANTOPRAZOLE
     Dosage: 40 MG, DAILY [TAKE 1 TABLET(S) EVERY DAY FOR 30 DAYS]
     Route: 048
     Dates: start: 20221117
  20. POTASSIUM CHLORIDE [Concomitant]
     Active Substance: POTASSIUM CHLORIDE
     Dosage: 10 MEQ, 2X/DAY
  21. RELPAX [Concomitant]
     Active Substance: ELETRIPTAN HYDROBROMIDE
     Dosage: 40 MG, AS NEEDED [TAKE 1 TABLET(S) EVERY DAY]
     Route: 048
  22. ROPINIROLE [Concomitant]
     Active Substance: ROPINIROLE
     Dosage: UNK
  23. SILVER SULFADIAZINE [Concomitant]
     Active Substance: SILVER SULFADIAZINE
     Indication: Thermal burn
     Dosage: 1 %, 2X/DAY [APPLY A 1/16 INCH (1.5 MM) THICK LAYER TO ENTIRE BURN AREA]
     Route: 061
  24. SPIRONOLACTONE [Concomitant]
     Active Substance: SPIRONOLACTONE
     Dosage: UNK
  25. SUCRALFATE [Concomitant]
     Active Substance: SUCRALFATE
     Dosage: 1 G, DAILY [TAKE 1 TABLET(S) EVERY DAY FOR 10 DAYS]
     Route: 048
  26. SYMBICORT [Concomitant]
     Active Substance: BUDESONIDE\FORMOTEROL FUMARATE DIHYDRATE
     Dosage: UNK, AS NEEDED [INHALE 2 PUFF(S) TWICE A DAY BY INHALATION ROUTE] /160 MCG 4.5 MCG/ACTUATION
  27. TRIAMCINOLONE ACETONIDE [Concomitant]
     Active Substance: TRIAMCINOLONE ACETONIDE
     Dosage: 40 MG [40MG AT R KNEE ]

REACTIONS (17)
  - Blood potassium decreased [Unknown]
  - Dyspepsia [Recovering/Resolving]
  - Blood pressure abnormal [Unknown]
  - Dyspnoea [Unknown]
  - Dyspnoea exertional [Unknown]
  - Decreased immune responsiveness [Unknown]
  - Dizziness [Unknown]
  - Nausea [Unknown]
  - Headache [Unknown]
  - Tooth infection [Unknown]
  - Feeling abnormal [Unknown]
  - Bone pain [Unknown]
  - Drug hypersensitivity [Unknown]
  - Condition aggravated [Unknown]
  - Malaise [Unknown]
  - Fall [Unknown]
  - Arthralgia [Unknown]

NARRATIVE: CASE EVENT DATE: 20200401
